FAERS Safety Report 6581950-7 (Version None)
Quarter: 2010Q1

REPORT INFORMATION
  Report Type: 
  Country: None (occurrence: None)
  Receive Date: 20100215
  Receipt Date: 20100203
  Transmission Date: 20100710
  Serious: Yes (Hospitalization, Other)
  Sender: FDA-Public Use
  Company Number: US-ELI_LILLY_AND_COMPANY-US201002002358

PATIENT
  Sex: Female

DRUGS (7)
  1. FORTEO [Suspect]
     Indication: OSTEOPOROSIS
     Dosage: 20 UG, DAILY (1/D)
     Dates: start: 20070101, end: 20080101
  2. FORTEO [Suspect]
     Dosage: 20 UG, DAILY (1/D)
     Dates: start: 20091101
  3. BENICAR [Concomitant]
  4. NEXIUM [Concomitant]
  5. NORVASC [Concomitant]
  6. VESICARE [Concomitant]
  7. CALCIUM [Concomitant]

REACTIONS (8)
  - BONE DISORDER [None]
  - CANDIDA OSTEOMYELITIS [None]
  - GAIT DISTURBANCE [None]
  - HIP ARTHROPLASTY [None]
  - LOWER LIMB FRACTURE [None]
  - PELVIC FRACTURE [None]
  - SKIN LESION [None]
  - SOFT TISSUE DISORDER [None]
